FAERS Safety Report 4631069-7 (Version None)
Quarter: 2005Q2

REPORT INFORMATION
  Report Type: 
  Country: None (occurrence: None)
  Receive Date: 20050408
  Receipt Date: 20050316
  Transmission Date: 20051028
  Serious: Yes (Other)
  Sender: FDA-Public Use
  Company Number: US-ABBOTT-05P-163-0294334-00

PATIENT
  Sex: Female
  Weight: 68.1 kg

DRUGS (7)
  1. TRICOR [Suspect]
     Indication: DRUG USE FOR UNKNOWN INDICATION
     Dates: start: 20030101, end: 20041217
  2. CRESTOR [Concomitant]
     Indication: DRUG USE FOR UNKNOWN INDICATION
     Route: 048
     Dates: start: 20040101, end: 20041101
  3. BENACAR [Concomitant]
     Indication: BLOOD PRESSURE INCREASED
     Route: 048
  4. DYAZIDE [Concomitant]
     Indication: BLOOD PRESSURE INCREASED
     Route: 048
  5. MULTI-VITAMINS [Concomitant]
     Indication: ROUTINE HEALTH MAINTENANCE
     Route: 048
  6. CALCIUM GLUCONATE [Concomitant]
     Indication: ROUTINE HEALTH MAINTENANCE
     Route: 048
  7. ACOLATE [Concomitant]
     Indication: DRUG USE FOR UNKNOWN INDICATION
     Dates: end: 20041101

REACTIONS (9)
  - AUTOIMMUNE HEPATITIS [None]
  - DISCOMFORT [None]
  - DYSPNOEA [None]
  - FEAR [None]
  - FEELING ABNORMAL [None]
  - GALLBLADDER PERFORATION [None]
  - HEPATIC ENZYME INCREASED [None]
  - HYPERVENTILATION [None]
  - PAIN [None]
